FAERS Safety Report 5948215-5 (Version None)
Quarter: 2008Q4

REPORT INFORMATION
  Report Type: 
  Country: None (occurrence: None)
  Receive Date: 20081110
  Receipt Date: 20081110
  Transmission Date: 20090506
  Serious: Yes (Other)
  Sender: FDA-Public Use
  Company Number: None

PATIENT
  Age: 63 Year
  Sex: Female
  Weight: 79.3795 kg

DRUGS (2)
  1. MIRAPEX [Suspect]
     Indication: BACK DISORDER
     Dosage: 0.5 MG TABLET ONE TAB DAILY W/DI PO
     Route: 048
     Dates: start: 20070601, end: 20071201
  2. MIRAPEX [Suspect]
     Indication: RESTLESS LEGS SYNDROME
     Dosage: 0.5 MG TABLET ONE TAB DAILY W/DI PO
     Route: 048
     Dates: start: 20070601, end: 20071201

REACTIONS (4)
  - CHEST DISCOMFORT [None]
  - MEMORY IMPAIRMENT [None]
  - MITRAL VALVE INCOMPETENCE [None]
  - PALPITATIONS [None]
